FAERS Safety Report 15360433 (Version 3)
Quarter: 2019Q3

REPORT INFORMATION
  Report Type: Spontaneous
  Country: US (occurrence: US)
  Receive Date: 20180907
  Receipt Date: 20190909
  Transmission Date: 20191004
  Serious: No
  Sender: FDA-Public Use
  Company Number: US-PFIZER INC-2018298130

PATIENT
  Age: 66 Year
  Sex: Male
  Weight: 86.18 kg

DRUGS (10)
  1. AMLODIPINE [Concomitant]
     Active Substance: AMLODIPINE BESYLATE
     Indication: NEOPLASM MALIGNANT
     Dosage: 5 MG, DAILY
     Route: 048
  2. VFEND [Suspect]
     Active Substance: VORICONAZOLE
     Indication: SEPSIS
     Dosage: 200 MG, UNK
     Dates: start: 2018
  3. VFEND [Suspect]
     Active Substance: VORICONAZOLE
     Indication: NEOPLASM MALIGNANT
     Dosage: 400 MG, 2X/DAY
     Route: 048
     Dates: start: 2018
  4. ACICLOVIR [Concomitant]
     Active Substance: ACYCLOVIR
     Dosage: 800 MG, 2X/DAY
     Route: 048
  5. SULFAMETHOXAZOLE [Concomitant]
     Active Substance: SULFAMETHOXAZOLE
     Dosage: 80 MG, DAILY
     Route: 048
     Dates: start: 2019
  6. LISINOPRIL. [Concomitant]
     Active Substance: LISINOPRIL
     Indication: BLOOD PRESSURE MEASUREMENT
     Dosage: 40 MG, DAILY
     Route: 048
  7. PREGABALIN. [Concomitant]
     Active Substance: PREGABALIN
     Indication: NEOPLASM MALIGNANT
     Dosage: 150 MG, DAILY
     Route: 048
  8. VFEND [Suspect]
     Active Substance: VORICONAZOLE
     Dosage: 400 MG, 2X/DAY (2 TABLETS OF 200MG TWICE DAILY)
     Route: 048
     Dates: start: 2018
  9. VFEND [Suspect]
     Active Substance: VORICONAZOLE
     Dosage: 800 MG, DAILY (4 TABLETS A DAY)
  10. URSODIOL. [Concomitant]
     Active Substance: URSODIOL
     Dosage: 600 MG, 2X/DAY
     Route: 048

REACTIONS (1)
  - Prescribed overdose [Unknown]

NARRATIVE: CASE EVENT DATE: 2018
